FAERS Safety Report 4503679-9 (Version None)
Quarter: 2004Q4

REPORT INFORMATION
  Report Type: 
  Country: None (occurrence: None)
  Receive Date: 20040928
  Receipt Date: 20040701
  Transmission Date: 20050328
  Serious: No
  Sender: FDA-Public Use
  Company Number: 04P-163-0263323-00

PATIENT
  Age: 62 Year
  Sex: Female
  Weight: 77.1115 kg

DRUGS (12)
  1. HUMIRA [Suspect]
     Indication: RHEUMATOID ARTHRITIS
     Dosage: 40 MG, 1 IN 2 WK, SUBCUTANEOUS
     Route: 058
     Dates: start: 20040603
  2. PREDNISONE [Concomitant]
  3. ALENDRONATE SODIUM [Concomitant]
  4. LEFLUNOMIDE [Concomitant]
  5. IBUPROFEN [Concomitant]
  6. OESTRANORM [Concomitant]
  7. FISH OIL [Concomitant]
  8. LINSEED OIL [Concomitant]
  9. ASCORBIC ACID [Concomitant]
  10. HORMONES [Concomitant]
  11. TOCOPHEROL CONCENTRATE CAP [Concomitant]
  12. CALCIUM [Concomitant]

REACTIONS (5)
  - INJECTION SITE BURNING [None]
  - INJECTION SITE ERYTHEMA [None]
  - INJECTION SITE NODULE [None]
  - RASH ERYTHEMATOUS [None]
  - SUNBURN [None]
